FAERS Safety Report 24785946 (Version 3)
Quarter: 2025Q3

REPORT INFORMATION
  Report Type: Spontaneous
  Country: CN (occurrence: CN)
  Receive Date: 20241229
  Receipt Date: 20250809
  Transmission Date: 20251021
  Serious: Yes (Hospitalization)
  Sender: ALEXION PHARMACEUTICALS
  Company Number: CN-AstraZeneca-CH-00772131A

PATIENT
  Age: 54 Year
  Sex: Male

DRUGS (2)
  1. PULMICORT RESPULES [Suspect]
     Active Substance: BUDESONIDE
     Route: 065
  2. BRICANYL [Suspect]
     Active Substance: TERBUTALINE SULFATE
     Route: 065

REACTIONS (6)
  - Malaise [Unknown]
  - Cardiac disorder [Unknown]
  - Nervousness [Unknown]
  - Tremor [Unknown]
  - Dyspnoea [Unknown]
  - Heart rate increased [Unknown]
